FAERS Safety Report 15401875 (Version 1)
Quarter: 2018Q3

REPORT INFORMATION
  Report Type: Spontaneous
  Country: FR (occurrence: FR)
  Receive Date: 20180919
  Receipt Date: 20180919
  Transmission Date: 20181010
  Serious: Yes (Other)
  Sender: FDA-Public Use
  Company Number: FR-TEVA-2018-FR-954303

PATIENT
  Sex: Female

DRUGS (1)
  1. RISPERIDONE 1 MG [Suspect]
     Active Substance: RISPERIDONE
     Route: 065

REACTIONS (3)
  - Depressive symptom [Unknown]
  - Tremor [Unknown]
  - Abnormal behaviour [Unknown]
